FAERS Safety Report 25108372 (Version 1)
Quarter: 2025Q1

REPORT INFORMATION
  Report Type: Spontaneous
  Country: US (occurrence: US)
  Receive Date: 20250322
  Receipt Date: 20250322
  Transmission Date: 20250409
  Serious: No
  Sender: ELI LILLY AND COMPANY
  Company Number: US-ELI_LILLY_AND_COMPANY-US202503017141

PATIENT
  Sex: Female

DRUGS (2)
  1. KISUNLA [Suspect]
     Active Substance: DONANEMAB-AZBT
     Indication: Product used for unknown indication
     Dosage: 700 MG, MONTHLY (1/M)
     Route: 065
     Dates: start: 202502
  2. KISUNLA [Suspect]
     Active Substance: DONANEMAB-AZBT
     Dosage: 350 MG, MONTHLY (1/M)
     Route: 065
     Dates: start: 20250319

REACTIONS (1)
  - Incorrect dose administered [Unknown]

NARRATIVE: CASE EVENT DATE: 20250319
